FAERS Safety Report 4486716-X (Version None)
Quarter: 2004Q4

REPORT INFORMATION
  Report Type: 
  Country: None (occurrence: None)
  Receive Date: 20041021
  Receipt Date: 20041012
  Transmission Date: 20050328
  Serious: Yes (Hospitalization)
  Sender: FDA-Public Use
  Company Number: 2004231121JP

PATIENT
  Age: 76 Year
  Sex: Male
  Weight: 55 kg

DRUGS (3)
  1. AZULFIDINE [Suspect]
     Indication: RHEUMATOID ARTHRITIS
     Dosage: 1 DF, BID; ORAL
     Route: 048
     Dates: start: 20040721, end: 20040810
  2. VOLTAREN [Suspect]
     Indication: ARTHRALGIA
     Dosage: 1 DF, BID; ORAL
     Route: 048
     Dates: start: 20040623, end: 20040810
  3. APLACE (TROXIPIDE) [Suspect]
     Indication: ARTHRALGIA
     Dosage: 100 MG BID; ORAL
     Route: 048
     Dates: start: 20040623, end: 20040810

REACTIONS (2)
  - AGRANULOCYTOSIS [None]
  - INFECTION [None]
